FAERS Safety Report 7570606-X (Version None)
Quarter: 2011Q2

REPORT INFORMATION
  Report Type: 
  Country: None (occurrence: None)
  Receive Date: 20110624
  Receipt Date: 20110413
  Transmission Date: 20111010
  Serious: No
  Sender: FDA-Public Use
  Company Number: US-ALLERGAN-1105183US

PATIENT
  Age: 57 Year
  Sex: Female

DRUGS (1)
  1. LATISSE [Suspect]
     Indication: HYPERTRICHOSIS
     Dosage: 2 GTT, QHS
     Dates: start: 20110311

REACTIONS (5)
  - WRONG TECHNIQUE IN DRUG USAGE PROCESS [None]
  - DRY SKIN [None]
  - EYELIDS PRURITUS [None]
  - SKIN HYPERPIGMENTATION [None]
  - INAPPROPRIATE SCHEDULE OF DRUG ADMINISTRATION [None]
